FAERS Safety Report 7201924-2 (Version None)
Quarter: 2010Q4

REPORT INFORMATION
  Report Type: 
  Country: None (occurrence: None)
  Receive Date: 20101229
  Receipt Date: 20101227
  Transmission Date: 20110411
  Serious: Yes (Death, Hospitalization, Other)
  Sender: FDA-Public Use
  Company Number: IN-PFIZER INC-2010045643

PATIENT
  Sex: Female

DRUGS (16)
  1. SUTENT [Suspect]
     Indication: METASTATIC RENAL CELL CARCINOMA
     Dosage: 50 MG, 4 WEEKS ON, 2 WEEKS OFF
     Route: 048
     Dates: end: 20101212
  2. LASIX [Concomitant]
     Dosage: 40 MG, 1 TABLET ONCE DAILY (OD)
  3. MUCAINE [Concomitant]
     Dosage: FOUR TIMES A DAY (QID)
  4. STAMLO [Concomitant]
     Dosage: 5 MG, UNK
  5. PANTOPRAZOLE [Concomitant]
     Dosage: 40 MG, 2X/DAY
  6. BECOSULES CAPSULE [Concomitant]
     Dosage: 1 CAPSULE OD
  7. ALPRAZOLAM [Concomitant]
     Dosage: 0.5 UNK, 1 TABLET HS (AT NIGHT)
  8. MOISTUREX [Concomitant]
     Dosage: UNK
  9. ELTROXIN [Concomitant]
     Dosage: 50 UNK, 1 TABLET OD
  10. METFORMIN [Concomitant]
     Dosage: 500 MG, 2X/DAY
  11. UNIENZYME [Concomitant]
     Dosage: 1 CAPSULE THRICE DAILY (TID)
  12. NOVOPEN [Concomitant]
     Dosage: 32  BEFORE BREAKFAST AND 12 BEFORE DINNER
     Route: 058
  13. CALCITRIOL [Concomitant]
     Dosage: UNK
  14. VITAMIN B6 [Concomitant]
     Dosage: UNK
  15. HEXIDIN [Concomitant]
     Dosage: UNK
  16. CLOTRIMAZOLE [Concomitant]
     Dosage: UNK

REACTIONS (4)
  - BLOOD GLUCOSE INCREASED [None]
  - CARDIAC DISORDER [None]
  - DEATH [None]
  - PAIN [None]
